FAERS Safety Report 7249503-5 (Version None)
Quarter: 2011Q1

REPORT INFORMATION
  Report Type: 
  Country: None (occurrence: None)
  Receive Date: 20110128
  Receipt Date: 20101221
  Transmission Date: 20110831
  Serious: Yes (Other)
  Sender: FDA-Public Use
  Company Number: US-BAYER-2010-008888

PATIENT
  Age: 17 Year
  Sex: Male

DRUGS (1)
  1. YAZ [Suspect]
     Dosage: UNK
     Dates: start: 20090101, end: 20090201

REACTIONS (1)
  - DEEP VEIN THROMBOSIS [None]
